FAERS Safety Report 17422923 (Version 1)
Quarter: 2020Q1

REPORT INFORMATION
  Report Type: Spontaneous
  Country: US (occurrence: US)
  Receive Date: 20200216
  Receipt Date: 20200216
  Transmission Date: 20200409
  Serious: No
  Sender: FDA-Public Use
  Company Number: US-ELI_LILLY_AND_COMPANY-US202002002235

PATIENT
  Sex: Female

DRUGS (2)
  1. HUMALOG [Suspect]
     Active Substance: INSULIN LISPRO
     Indication: DIABETES MELLITUS
     Dosage: 100 DOSAGE FORM, UNKNOWN
     Route: 058
  2. TRESIBA [Concomitant]
     Active Substance: INSULIN DEGLUDEC
     Indication: DIABETES MELLITUS

REACTIONS (17)
  - Nasal congestion [Unknown]
  - Fatigue [Unknown]
  - Rhinorrhoea [Unknown]
  - Herpes zoster [Unknown]
  - Nervous system disorder [Unknown]
  - Memory impairment [Unknown]
  - Ear discomfort [Unknown]
  - Amnesia [Unknown]
  - Movement disorder [Unknown]
  - Arthralgia [Unknown]
  - Confusional state [Unknown]
  - Muscular weakness [Unknown]
  - Hypoaesthesia [Unknown]
  - Dysphagia [Unknown]
  - Myalgia [Recovered/Resolved]
  - Tremor [Unknown]
  - Dyspnoea [Unknown]
